FAERS Safety Report 9410760 (Version 1)
Quarter: 2013Q3

REPORT INFORMATION
  Report Type: Spontaneous
  Country: FR (occurrence: FR)
  Receive Date: 20130719
  Receipt Date: 20130719
  Transmission Date: 20140515
  Serious: Yes (Other)
  Sender: FDA-Public Use
  Company Number: FR-ALLERGAN-1310536US

PATIENT
  Age: 62 Year
  Sex: Female

DRUGS (3)
  1. VISTABEL [Suspect]
     Indication: SKIN WRINKLING
     Dosage: UNK, SINGLE
     Route: 030
     Dates: start: 20130515, end: 20130515
  2. VISTABEL [Suspect]
     Indication: SKIN WRINKLING
  3. VISTABEL [Suspect]
     Indication: SKIN WRINKLING

REACTIONS (1)
  - Cutaneous vasculitis [Recovered/Resolved]
